FAERS Safety Report 9515109 (Version 3)
Quarter: 2013Q4

REPORT INFORMATION
  Report Type: Spontaneous
  Country: JP (occurrence: JP)
  Receive Date: 20130911
  Receipt Date: 20131014
  Transmission Date: 20140711
  Serious: Yes (Hospitalization)
  Sender: FDA-Public Use
  Company Number: JP-ELI_LILLY_AND_COMPANY-JP201309000341

PATIENT
  Age: 50 Year
  Sex: Male
  Weight: 62 kg

DRUGS (15)
  1. ZYPREXA [Suspect]
     Indication: SCHIZOPHRENIA
     Dosage: 5 MG, BID
     Route: 048
     Dates: end: 20130826
  2. ZYPREXA [Suspect]
     Indication: SCHIZOPHRENIA
     Dosage: 5 MG, BID
     Route: 048
     Dates: start: 20130827
  3. ABILIFY [Suspect]
     Indication: SCHIZOPHRENIA
     Dosage: UNK UNK, TID
     Route: 048
     Dates: end: 20130826
  4. LEVOTOMIN /00038602/ [Suspect]
     Indication: SCHIZOPHRENIA
     Dosage: 200 MG, QD
     Route: 048
     Dates: end: 20130825
  5. LEVOTOMIN /00038602/ [Suspect]
     Indication: SCHIZOPHRENIA
     Dosage: 200 MG, QD
     Route: 048
     Dates: start: 20130826, end: 20130827
  6. LEVOTOMIN /00038602/ [Suspect]
     Dosage: 150 MG, QD
     Route: 048
     Dates: start: 20130828
  7. U PAN [Concomitant]
     Dosage: 1 MG, TID
     Route: 048
  8. MOSAPRIDE CITRATE [Concomitant]
     Route: 065
  9. ACINON [Concomitant]
     Route: 065
  10. RESLIN [Concomitant]
     Dosage: 200 MG, QD
     Route: 048
  11. DEPAS [Concomitant]
     Dosage: 3 MG, QD
     Route: 048
  12. SENNOSIDE                          /00571901/ [Concomitant]
     Route: 065
  13. LANDSEN [Concomitant]
     Dosage: 2 MG, QD
     Route: 048
  14. ROZEREM [Concomitant]
     Dosage: 8 MG, QD
     Route: 048
  15. YOKUKAN-SAN [Concomitant]
     Route: 048

REACTIONS (9)
  - Fall [Recovered/Resolved]
  - Contusion [Unknown]
  - Jaw fracture [Recovering/Resolving]
  - Skull fractured base [Unknown]
  - Pulmonary infarction [Recovering/Resolving]
  - Pulmonary embolism [Recovering/Resolving]
  - Deep vein thrombosis [Recovering/Resolving]
  - Restlessness [Unknown]
  - Somnolence [Recovered/Resolved]
